FAERS Safety Report 9261933 (Version 2)
Quarter: 2013Q2

REPORT INFORMATION
  Report Type: Spontaneous
  Country: US (occurrence: US)
  Receive Date: 20130429
  Receipt Date: 20130507
  Transmission Date: 20140414
  Serious: Yes (Other)
  Sender: FDA-Public Use
  Company Number: US-BAXTER-2013BAX015110

PATIENT
  Age: 78 Year
  Sex: Female

DRUGS (1)
  1. DIANEAL LOW CALCIUM [Suspect]
     Indication: PERITONEAL DIALYSIS
     Route: 033
     Dates: start: 201212

REACTIONS (3)
  - Hiatus hernia [Recovering/Resolving]
  - Thrombosis [Recovering/Resolving]
  - Hypotension [Recovering/Resolving]
